FAERS Safety Report 14572769 (Version 2)
Quarter: 2018Q2

REPORT INFORMATION
  Report Type: Report from Study
  Country: US (occurrence: US)
  Receive Date: 20180226
  Receipt Date: 20180508
  Transmission Date: 20180711
  Serious: Yes (Hospitalization)
  Sender: FDA-Public Use
  Company Number: US-SA-2017SA217106

PATIENT
  Age: 33 Year
  Sex: Female

DRUGS (2)
  1. LEMTRADA [Suspect]
     Active Substance: ALEMTUZUMAB
     Indication: MULTIPLE SCLEROSIS
     Route: 041
     Dates: start: 20160912, end: 20160916
  2. LEMTRADA [Suspect]
     Active Substance: ALEMTUZUMAB
     Indication: MULTIPLE SCLEROSIS
     Route: 041
     Dates: start: 20171016, end: 20171018

REACTIONS (10)
  - Cough [Recovering/Resolving]
  - Rash [Recovered/Resolved]
  - Ear infection [Recovering/Resolving]
  - Influenza [Recovering/Resolving]
  - Sinus disorder [Recovering/Resolving]
  - Blood magnesium decreased [Recovering/Resolving]
  - Fatigue [Recovered/Resolved]
  - Migraine [Recovering/Resolving]
  - Nausea [Recovered/Resolved]
  - Myalgia [Unknown]

NARRATIVE: CASE EVENT DATE: 201710
